FAERS Safety Report 16707072 (Version 1)
Quarter: 2019Q3

REPORT INFORMATION
  Report Type: Spontaneous
  Country: US (occurrence: US)
  Receive Date: 20190815
  Receipt Date: 20190815
  Transmission Date: 20191004
  Serious: No
  Sender: FDA-Public Use
  Company Number: US-THERAPEUTICSMD-2019TMD01413

PATIENT
  Sex: Female

DRUGS (1)
  1. BIJUVA [Suspect]
     Active Substance: ESTRADIOL\PROGESTERONE
     Dosage: UNK, ONCE BEFORE WENT TO SLEEP

REACTIONS (5)
  - Middle insomnia [Unknown]
  - Heart rate increased [Unknown]
  - Poor quality sleep [Unknown]
  - Insomnia [Unknown]
  - Product substitution issue [Recovered/Resolved]
